FAERS Safety Report 9242634 (Version 3)
Quarter: 2013Q3

REPORT INFORMATION
  Report Type: Spontaneous
  Country: US (occurrence: US)
  Receive Date: 20130419
  Receipt Date: 20130913
  Transmission Date: 20140515
  Serious: Yes (Hospitalization)
  Sender: FDA-Public Use
  Company Number: US-NOVOPROD-375484

PATIENT
  Age: 61 Year
  Sex: Male
  Weight: 128.9 kg

DRUGS (19)
  1. VICTOZA [Suspect]
     Indication: TYPE 2 DIABETES MELLITUS
     Dosage: UNK
     Route: 058
     Dates: start: 20130118
  2. VICTOZA [Suspect]
     Dosage: 1.2 MG QD
     Route: 058
     Dates: start: 201303
  3. VICTOZA [Suspect]
     Dosage: 1.8 MG QD
     Route: 058
     Dates: start: 2013, end: 20130405
  4. NOVOLOG FLEXPEN [Concomitant]
     Indication: PRODUCT USED FOR UNKNOWN INDICATION
     Dosage: 15 U TID BEFORE MEALS
     Dates: start: 20130118
  5. LANTUS [Concomitant]
     Indication: PRODUCT USED FOR UNKNOWN INDICATION
     Dosage: 100 U QD
     Route: 058
     Dates: start: 20130118
  6. GLUCOTROL [Concomitant]
     Indication: PRODUCT USED FOR UNKNOWN INDICATION
     Dosage: 10 MG BID BEFORE MEALS
     Dates: start: 20130228
  7. BETAPACE [Concomitant]
     Indication: ATRIAL FIBRILLATION
     Dosage: 80 MG BID
     Route: 048
     Dates: start: 20101206
  8. LASIX                              /00032601/ [Concomitant]
     Indication: CARDIAC FAILURE CONGESTIVE
     Dosage: 40 MG IN THE AM, 40 MG PRN
     Route: 048
     Dates: start: 20130118, end: 20130407
  9. LASIX                              /00032601/ [Concomitant]
     Dosage: 80 MG EVERY MORNING
     Route: 048
  10. LASIX                              /00032601/ [Concomitant]
     Dosage: 40 MG AT NIGHT
  11. ASPIRIN [Concomitant]
     Indication: PRODUCT USED FOR UNKNOWN INDICATION
     Dosage: 81 MG QD
     Route: 048
     Dates: start: 20090708
  12. LIPITOR [Concomitant]
     Indication: PRODUCT USED FOR UNKNOWN INDICATION
     Dosage: 80 MG QD
     Route: 048
     Dates: start: 20130118
  13. VITAMIN D                          /00318501/ [Concomitant]
     Indication: PRODUCT USED FOR UNKNOWN INDICATION
     Dosage: 2000 U QD
     Route: 048
     Dates: start: 20110610
  14. CATAPRES                           /00171101/ [Concomitant]
     Indication: PRODUCT USED FOR UNKNOWN INDICATION
     Dosage: 0.1 MG BID
     Route: 048
     Dates: start: 20130228
  15. NITROSTAT [Concomitant]
     Indication: PRODUCT USED FOR UNKNOWN INDICATION
     Dosage: 0.4 MG PRN
     Route: 060
     Dates: start: 20091201
  16. MICRO K [Concomitant]
     Indication: PRODUCT USED FOR UNKNOWN INDICATION
     Dosage: 10 MEQ BID
     Route: 048
     Dates: start: 20121009
  17. CIALIS [Concomitant]
     Indication: PRODUCT USED FOR UNKNOWN INDICATION
     Dosage: 20 MG PRN
     Route: 048
     Dates: start: 20110426
  18. COUMADIN                           /00014802/ [Concomitant]
     Indication: PRODUCT USED FOR UNKNOWN INDICATION
     Dosage: 5 MG ON MON AND FRI
     Route: 048
     Dates: start: 20100706
  19. COUMADIN                           /00014802/ [Concomitant]
     Dosage: 7.5 MG QD ON SUN, TUES, WED, THURS AND SAT
     Route: 048
     Dates: start: 20100706

REACTIONS (5)
  - Atrial fibrillation [Recovered/Resolved]
  - Insomnia [Unknown]
  - Dyspepsia [Recovered/Resolved]
  - Renal disorder [Not Recovered/Not Resolved]
  - Condition aggravated [Not Recovered/Not Resolved]
